FAERS Safety Report 6372503-4 (Version None)
Quarter: 2009Q3

REPORT INFORMATION
  Report Type: 
  Country: None (occurrence: None)
  Receive Date: 20090924
  Receipt Date: 20080825
  Transmission Date: 20100115
  Serious: No
  Sender: FDA-Public Use
  Company Number: US-ASTRAZENECA-2008UW17406

PATIENT
  Sex: Female

DRUGS (1)
  1. SEROQUEL [Suspect]
     Indication: STRESS
     Route: 048
     Dates: start: 20080819

REACTIONS (4)
  - ANGER [None]
  - FEELING DRUNK [None]
  - MUSCLE TWITCHING [None]
  - SPEECH DISORDER [None]
